FAERS Safety Report 20913545 (Version 1)
Quarter: 2022Q2

REPORT INFORMATION
  Report Type: Spontaneous
  Country: FR (occurrence: FR)
  Receive Date: 20220604
  Receipt Date: 20220604
  Transmission Date: 20220721
  Serious: Yes (Other)
  Sender: FDA-Public Use
  Company Number: FR-MALLINCKRODT-T202202693

PATIENT
  Age: 30 Year
  Sex: Male
  Weight: 56 kg

DRUGS (3)
  1. UVADEX [Suspect]
     Active Substance: METHOXSALEN
     Indication: Cytomegalovirus infection
     Dosage: UNK, EXTRACORPOREAL (1ST TREATMENT)
     Route: 050
     Dates: start: 20220517, end: 202205
  2. UVADEX [Suspect]
     Active Substance: METHOXSALEN
     Dosage: UNK, EXTRACORPOREAL  (2ND TREATMENT)
     Route: 050
     Dates: start: 20220523
  3. HEPARIN [Concomitant]
     Active Substance: HEPARIN SODIUM
     Indication: Anticoagulant therapy
     Dosage: 10.000IU IN 500ML NACL, (A/C RATIO 10:1)
     Route: 065
     Dates: start: 20220517

REACTIONS (3)
  - Hypokalaemia [Not Recovered/Not Resolved]
  - Paraesthesia [Not Recovered/Not Resolved]
  - Product use in unapproved indication [Unknown]

NARRATIVE: CASE EVENT DATE: 20220517
